FAERS Safety Report 4736472-2 (Version None)
Quarter: 2005Q3

REPORT INFORMATION
  Report Type: 
  Country: None (occurrence: None)
  Receive Date: 20050805
  Receipt Date: 20050805
  Transmission Date: 20060218
  Serious: No
  Sender: FDA-Public Use
  Company Number: None

PATIENT
  Sex: Male
  Weight: 113.8529 kg

DRUGS (2)
  1. CYTOXAN [Suspect]
     Dosage: 2.3 GM
     Dates: start: 20050302
  2. CYTOXAN [Suspect]
     Dosage: 2.3 GM
     Dates: start: 20050303

REACTIONS (1)
  - NEUTROPENIA [None]
